FAERS Safety Report 17308145 (Version 2)
Quarter: 2020Q1

REPORT INFORMATION
  Report Type: Report from Study
  Country: CA (occurrence: CA)
  Receive Date: 20200123
  Receipt Date: 20200129
  Transmission Date: 20200409
  Serious: Yes (Other)
  Sender: FDA-Public Use
  Company Number: PHHY2019CA223937

PATIENT
  Age: 57 Year
  Sex: Female

DRUGS (3)
  1. ATORVASTATIN [Concomitant]
     Active Substance: ATORVASTATIN
     Indication: BLOOD CHOLESTEROL INCREASED
     Dosage: 10 OT, UNK
     Route: 065
  2. COSENTYX [Suspect]
     Active Substance: SECUKINUMAB
     Indication: PSORIATIC ARTHROPATHY
     Dosage: 300 MG, QW (PEN)
     Route: 058
     Dates: start: 20190920
  3. COSENTYX [Suspect]
     Active Substance: SECUKINUMAB
     Dosage: 300 MG, QMO
     Route: 058
     Dates: start: 2020

REACTIONS (10)
  - Psoriatic arthropathy [Not Recovered/Not Resolved]
  - Lower respiratory tract infection [Unknown]
  - Injection site pain [Unknown]
  - Joint swelling [Unknown]
  - Dizziness [Unknown]
  - Sinusitis [Unknown]
  - Peripheral swelling [Unknown]
  - Electrocardiogram QT prolonged [Unknown]
  - Pyrexia [Unknown]
  - Malaise [Unknown]

NARRATIVE: CASE EVENT DATE: 20190920
